FAERS Safety Report 21633880 (Version 1)
Quarter: 2022Q4

REPORT INFORMATION
  Report Type: Spontaneous
  Country: US (occurrence: None)
  Receive Date: 20221122
  Receipt Date: 20221122
  Transmission Date: 20230113
  Serious: No
  Sender: FDA-Public Use
  Company Number: None

PATIENT
  Age: 73 Year
  Sex: Female
  Weight: 89.36 kg

DRUGS (15)
  1. CAPECITABINE [Suspect]
     Active Substance: CAPECITABINE
     Indication: Colon cancer
     Dosage: 2000-1500MG TWICE A DAY ORAL?
     Route: 048
     Dates: start: 20220907
  2. CLONAZEPAM [Concomitant]
     Active Substance: CLONAZEPAM
  3. COENZYME Q10 [Concomitant]
     Active Substance: DIETARY SUPPLEMENT\UBIDECARENONE
  4. VITAMIN D3 [Concomitant]
     Active Substance: CHOLECALCIFEROL
  5. KRILL OIL [Concomitant]
     Active Substance: DIETARY SUPPLEMENT\KRILL OIL
  6. LEVOTHYROXINE [Concomitant]
  7. MAGNESIUM OXIDE [Concomitant]
     Active Substance: MAGNESIUM OXIDE
  8. Multi vitamin [Concomitant]
  9. OMEGA 3 [Concomitant]
     Active Substance: CAPSAICIN
  10. PEPCID [Concomitant]
     Active Substance: FAMOTIDINE
  11. DIETARY SUPPLEMENT\RESVERATROL [Concomitant]
     Active Substance: DIETARY SUPPLEMENT\RESVERATROL
  12. SEROQUEL [Concomitant]
     Active Substance: QUETIAPINE FUMARATE
  13. XARELTO [Concomitant]
     Active Substance: RIVAROXABAN
  14. ATORVASTATIN CALCIUM [Concomitant]
     Active Substance: ATORVASTATIN CALCIUM
  15. AVASTIN [Concomitant]
     Active Substance: BEVACIZUMAB

REACTIONS (1)
  - Hepatic enzyme increased [None]
